FAERS Safety Report 6911456-4 (Version None)
Quarter: 2010Q3

REPORT INFORMATION
  Report Type: 
  Country: None (occurrence: None)
  Receive Date: 20100806
  Receipt Date: 20100730
  Transmission Date: 20110219
  Serious: Yes (Other)
  Sender: FDA-Public Use
  Company Number: US-JNJFOC-20100404830

PATIENT
  Sex: Female
  Weight: 58.97 kg

DRUGS (27)
  1. FENTANYL CITRATE [Suspect]
     Indication: PAIN IN EXTREMITY
     Route: 062
  2. FENTANYL CITRATE [Suspect]
     Indication: PAIN
     Route: 062
  3. FENTANYL CITRATE [Suspect]
     Route: 062
  4. FENTANYL CITRATE [Suspect]
     Route: 062
  5. DURAGESIC-100 [Suspect]
     Indication: PRODUCT USED FOR UNKNOWN INDICATION
     Route: 062
  6. LEVOTHYROXINE [Concomitant]
     Route: 065
  7. ZANAFLEX [Concomitant]
     Indication: MUSCLE DISORDER
     Route: 048
  8. ATENOLOL [Concomitant]
     Indication: HYPERTENSION
     Route: 048
  9. ATENOLOL [Concomitant]
     Route: 048
  10. TRICOR [Concomitant]
     Indication: BLOOD CHOLESTEROL INCREASED
     Route: 048
  11. LYRICA [Concomitant]
     Indication: PAIN
     Route: 048
  12. MIRTAZAPINE [Concomitant]
     Indication: SLEEP DISORDER
     Route: 048
  13. PHENERGAN [Concomitant]
     Route: 065
  14. AMBIEN [Concomitant]
     Route: 065
  15. ZANAFLEX [Concomitant]
     Route: 065
  16. VALIUM [Concomitant]
     Dosage: 2 TO 5 A DAY
     Route: 065
  17. LORTAB [Concomitant]
     Route: 065
  18. LIDOCAINE [Concomitant]
     Route: 065
  19. LOTRIMIN [Concomitant]
     Indication: DIARRHOEA
     Route: 065
  20. TRAMADOL HYDROCHLORIDE [Concomitant]
     Route: 065
  21. DOXEPIN HCL [Concomitant]
     Route: 065
  22. COLESTIPOL HYDROCHLORIDE [Concomitant]
     Route: 065
  23. PREVACID [Concomitant]
     Route: 065
  24. PROMETHAZINE [Concomitant]
     Route: 065
  25. PREDNISONE [Concomitant]
     Route: 065
  26. ZOLPIDEM [Concomitant]
     Route: 065
  27. DIAZEPAM [Concomitant]
     Route: 065

REACTIONS (10)
  - ALOPECIA [None]
  - ANXIETY [None]
  - BLOOD CHOLESTEROL INCREASED [None]
  - BLOOD TRIGLYCERIDES INCREASED [None]
  - DIARRHOEA [None]
  - DYSPHAGIA [None]
  - GASTRIC DISORDER [None]
  - INADEQUATE ANALGESIA [None]
  - NERVOUSNESS [None]
  - RHEUMATOID ARTHRITIS [None]
